FAERS Safety Report 9318547 (Version 3)
Quarter: 2014Q2

REPORT INFORMATION
  Report Type: Spontaneous
  Country: DK (occurrence: None)
  Receive Date: 20130524
  Receipt Date: 20140606
  Transmission Date: 20141212
  Serious: Yes (Other)
  Sender: FDA-Public Use
  Company Number: DK-2013-1456

PATIENT
  Age: 63 Year
  Sex: Female

DRUGS (4)
  1. NAVELBINE (VINORELBINE TARTRATE) INFUSION [Suspect]
     Indication: BREAST CANCER
     Dates: start: 2009
  2. SENDOXAN [Suspect]
     Indication: BREAST CANCER
     Dates: start: 2009
  3. FASLODEX (FULVESTRANT) [Suspect]
     Indication: BREAST CANCER RECURRENT
  4. HERCEPTIN (TRASTUZUMAB) [Suspect]
     Indication: BREAST CANCER
     Route: 042
     Dates: start: 2009, end: 201303

REACTIONS (7)
  - Ocular hypertension [None]
  - Visual impairment [None]
  - Visual field defect [None]
  - Sensory disturbance [None]
  - Stress [None]
  - Retinal detachment [None]
  - Photopsia [None]
